FAERS Safety Report 23851128 (Version 1)
Quarter: 2024Q2

REPORT INFORMATION
  Report Type: Spontaneous
  Country: US (occurrence: US)
  Receive Date: 20240514
  Receipt Date: 20240514
  Transmission Date: 20240716
  Serious: Yes (Hospitalization)
  Sender: FDA-Public Use
  Company Number: US-GRAVITIPHARMA-GRA-2404-US-LIT-0128

PATIENT
  Age: 35 Year
  Sex: Male

DRUGS (8)
  1. ATORVASTATIN CALCIUM [Suspect]
     Active Substance: ATORVASTATIN CALCIUM
     Indication: Hypertriglyceridaemia
  2. FENOFIBRATE [Suspect]
     Active Substance: FENOFIBRATE
     Indication: Hypertriglyceridaemia
  3. ICOSAPENT ETHYL [Suspect]
     Active Substance: ICOSAPENT ETHYL
     Indication: Hypertriglyceridaemia
  4. METFORMIN [Suspect]
     Active Substance: METFORMIN HYDROCHLORIDE
     Indication: Diabetes mellitus
  5. INSULIN NOS [Suspect]
     Active Substance: INSULIN NOS
     Indication: Diabetes mellitus
     Dosage: UNITS PER DAY
  6. INSULIN NOS [Concomitant]
     Active Substance: INSULIN NOS
     Route: 041
  7. EVOLOCUMAB [Concomitant]
     Active Substance: EVOLOCUMAB
     Indication: Blood triglycerides
  8. EVOLOCUMAB [Concomitant]
     Active Substance: EVOLOCUMAB
     Route: 058

REACTIONS (1)
  - Drug ineffective [Unknown]
